FAERS Safety Report 7052692-9 (Version None)
Quarter: 2010Q4

REPORT INFORMATION
  Report Type: 
  Country: None (occurrence: None)
  Receive Date: 20101008
  Receipt Date: 20100930
  Transmission Date: 20110411
  Serious: Yes (Other)
  Sender: FDA-Public Use
  Company Number: 2010SP052438

PATIENT
  Age: 55 Year
  Sex: Male

DRUGS (3)
  1. INTEGRILIN [Suspect]
     Indication: STENT PLACEMENT
     Dosage: IV
     Route: 042
     Dates: start: 20100928, end: 20100928
  2. NIACIN [Concomitant]
  3. ZOCOR [Concomitant]

REACTIONS (2)
  - SPEECH DISORDER [None]
  - TREMOR [None]
